FAERS Safety Report 6927405-9 (Version None)
Quarter: 2010Q3

REPORT INFORMATION
  Report Type: 
  Country: None (occurrence: None)
  Receive Date: 20100817
  Receipt Date: 20100812
  Transmission Date: 20110219
  Serious: Yes (Other)
  Sender: FDA-Public Use
  Company Number: PT-TEVA-244622ISR

PATIENT
  Sex: Female

DRUGS (6)
  1. FLUOXETINE [Suspect]
     Indication: ANTIDEPRESSANT THERAPY
     Route: 048
     Dates: start: 20100719, end: 20100721
  2. CYAMEMAZINE TARTRATE [Concomitant]
     Indication: BIPOLAR DISORDER
     Route: 048
     Dates: start: 20100719
  3. FLURAZEPAM HYDROCHLORIDE [Concomitant]
     Indication: INSOMNIA
     Route: 048
     Dates: start: 20100719
  4. VALPROATE SODIUM [Concomitant]
     Indication: BIPOLAR DISORDER
     Route: 048
     Dates: start: 20100719
  5. BROMAZEPAM [Concomitant]
     Indication: INSOMNIA
     Route: 048
     Dates: start: 20100719
  6. PROPRANOLOL [Concomitant]
     Route: 048
     Dates: start: 20100719

REACTIONS (2)
  - DYSURIA [None]
  - LIP BLISTER [None]
